FAERS Safety Report 9171617 (Version 1)
Quarter: 2013Q1

REPORT INFORMATION
  Report Type: Spontaneous
  Country: DE (occurrence: DE)
  Receive Date: 20130319
  Receipt Date: 20130319
  Transmission Date: 20140127
  Serious: Yes (Hospitalization)
  Sender: FDA-Public Use
  Company Number: DE-ASTRAZENECA-2013SE17484

PATIENT
  Age: 3 Month
  Sex: Male
  Weight: 4.5 kg

DRUGS (4)
  1. SYNAGIS [Suspect]
     Indication: ANTIVIRAL PROPHYLAXIS
     Route: 030
     Dates: start: 20121207, end: 20121207
  2. SYNAGIS [Suspect]
     Indication: ANTIVIRAL PROPHYLAXIS
     Route: 030
     Dates: start: 20130102, end: 20130102
  3. COLECALCIFEROL/SODIUM FLUORIDE [Concomitant]
  4. CAFFEINE [Concomitant]

REACTIONS (3)
  - Apnoea [Recovered/Resolved]
  - Bradycardia neonatal [Recovered/Resolved]
  - Abdominal pain [Unknown]
